FAERS Safety Report 22745642 (Version 5)
Quarter: 2024Q2

REPORT INFORMATION
  Report Type: Report from Study
  Country: CN (occurrence: CN)
  Receive Date: 20230725
  Receipt Date: 20240511
  Transmission Date: 20240716
  Serious: Yes (Hospitalization)
  Sender: FDA-Public Use
  Company Number: CN-AMGEN-CHNNI2023117115

PATIENT
  Age: 51 Year
  Sex: Male
  Weight: 55 kg

DRUGS (9)
  1. EVOLOCUMAB [Suspect]
     Active Substance: EVOLOCUMAB
     Indication: Dyslipidaemia
     Dosage: 140 MILLIGRAM
     Route: 058
     Dates: start: 20230412
  2. ASPIRIN\CLOPIDOGREL BISULFATE [Concomitant]
     Active Substance: ASPIRIN\CLOPIDOGREL BISULFATE
     Dosage: 175 MILLIGRAM
     Route: 048
     Dates: start: 20230406
  3. RABEPRAZOLE [Concomitant]
     Active Substance: RABEPRAZOLE
     Dosage: 10 MILLIGRAM
     Route: 048
     Dates: start: 20230406
  4. ROSUVASTATIN [Concomitant]
     Active Substance: ROSUVASTATIN
     Indication: Dyslipidaemia
     Dosage: 20 MILLIGRAM
     Route: 048
     Dates: start: 20230406
  5. SUCRATE [Concomitant]
     Dosage: 5 MILLIEQUIVALENT
     Route: 048
     Dates: start: 20230406
  6. HYZETIMIBE [Concomitant]
     Active Substance: HYZETIMIBE
     Dosage: 10 MILLIGRAM
     Route: 048
     Dates: start: 20230407
  7. SACUBITRIL\VALSARTAN [Concomitant]
     Active Substance: SACUBITRIL\VALSARTAN
     Dosage: 100 MILLIGRAM
     Route: 048
     Dates: start: 20230407
  8. SPIRONOLACTONE [Concomitant]
     Active Substance: SPIRONOLACTONE
     Dosage: 20 MILLIGRAM
     Route: 048
     Dates: start: 20230407
  9. DAPAGLIFLOZIN [Concomitant]
     Active Substance: DAPAGLIFLOZIN
     Dosage: 10 MILLIGRAM
     Route: 048
     Dates: start: 20230412

REACTIONS (1)
  - Myocardial infarction [Not Recovered/Not Resolved]

NARRATIVE: CASE EVENT DATE: 20230628
